FAERS Safety Report 13104214 (Version 1)
Quarter: 2017Q1

REPORT INFORMATION
  Report Type: Spontaneous
  Country: US (occurrence: US)
  Receive Date: 20170111
  Receipt Date: 20170111
  Transmission Date: 20170428
  Serious: Yes (Other)
  Sender: FDA-Public Use
  Company Number: US-GLENMARK GENERICS (EUROPE) LTD-2016GMK024579

PATIENT

DRUGS (2)
  1. TELMISARTAN TABLETS [Suspect]
     Active Substance: TELMISARTAN
     Dosage: 40 MG, QD, 1 TABLET IN MORNING
     Route: 048
     Dates: start: 2014
  2. TELMISARTAN TABLETS [Suspect]
     Active Substance: TELMISARTAN
     Indication: HYPERTENSION
     Dosage: 40MG, 1/2 TABLET IN MORNING AND 1/2 TABLET AT NOON OR LITTLE AFTER NOON
     Route: 048
     Dates: start: 2014

REACTIONS (6)
  - Drug dose omission [Unknown]
  - Wrong technique in product usage process [Unknown]
  - Hypertension [Unknown]
  - Pulse abnormal [Unknown]
  - Vein disorder [Unknown]
  - Dizziness [Recovered/Resolved]

NARRATIVE: CASE EVENT DATE: 201610
